FAERS Safety Report 6699249-7 (Version None)
Quarter: 2010Q2

REPORT INFORMATION
  Report Type: 
  Country: None (occurrence: None)
  Receive Date: 20100427
  Receipt Date: 20100422
  Transmission Date: 20101027
  Serious: Yes (Death, Other)
  Sender: FDA-Public Use
  Company Number: JP-ELI_LILLY_AND_COMPANY-JP201004004481

PATIENT
  Age: 79 Year
  Sex: Male

DRUGS (1)
  1. GEMZAR [Suspect]
     Indication: PLEURAL MESOTHELIOMA
     Dosage: 1400 MG, OTHER
     Route: 042
     Dates: start: 20070101, end: 20070101

REACTIONS (7)
  - BRONCHOPNEUMONIA [None]
  - CARDIOMEGALY [None]
  - CHEST X-RAY ABNORMAL [None]
  - HEPATIC FUNCTION ABNORMAL [None]
  - LYMPHANGIOSIS CARCINOMATOSA [None]
  - OFF LABEL USE [None]
  - RENAL IMPAIRMENT [None]
